FAERS Safety Report 26002704 (Version 1)
Quarter: 2025Q4

REPORT INFORMATION
  Report Type: Report from Study
  Country: CH (occurrence: CH)
  Receive Date: 20251106
  Receipt Date: 20251106
  Transmission Date: 20260118
  Serious: Yes (Hospitalization)
  Sender: ABBVIE
  Company Number: CH-ABBVIE-6531923

PATIENT
  Age: 84 Year
  Sex: Female

DRUGS (2)
  1. CARBIDOPA\LEVODOPA [Suspect]
     Active Substance: CARBIDOPA\LEVODOPA
     Indication: Parkinson^s disease
     Dosage: MD 4.5 ML, CRD 3.0 ML/H, CRN 2.5 ML/H, ED 1.5 ML,
     Route: 050
     Dates: start: 20250514
  2. CARBIDOPA\LEVODOPA [Suspect]
     Active Substance: CARBIDOPA\LEVODOPA
     Dosage: MD 4.5 ML, CRD 3.0 ML/H, CRN 2.5 ML/H, ED 5.5 ML,
     Route: 050
     Dates: start: 20251031

REACTIONS (3)
  - Upper limb fracture [Unknown]
  - Akinesia [Unknown]
  - Device dislocation [Unknown]

NARRATIVE: CASE EVENT DATE: 20251031
